FAERS Safety Report 18608577 (Version 2)
Quarter: 2021Q1

REPORT INFORMATION
  Report Type: Spontaneous
  Country: FR (occurrence: FR)
  Receive Date: 20201213
  Receipt Date: 20210224
  Transmission Date: 20210419
  Serious: Yes (Hospitalization)
  Sender: FDA-Public Use
  Company Number: FR-DEXPHARM-20201117

PATIENT
  Age: 51 Year
  Sex: Female
  Weight: 45 kg

DRUGS (10)
  1. LOVENOX [Suspect]
     Active Substance: ENOXAPARIN SODIUM
     Indication: THROMBOSIS PROPHYLAXIS
     Route: 058
     Dates: start: 20201108, end: 20201118
  2. ZAMUDOL L.P. 50 MG [Suspect]
     Active Substance: TRAMADOL HYDROCHLORIDE
     Indication: PAIN
     Route: 048
     Dates: start: 20201109, end: 20201115
  3. EFFEXOR [Suspect]
     Active Substance: VENLAFAXINE HYDROCHLORIDE
     Indication: DEPRESSION
     Route: 048
     Dates: start: 20201110, end: 20201117
  4. NORSET [Suspect]
     Active Substance: MIRTAZAPINE
     Indication: DEPRESSION
     Route: 048
     Dates: start: 20201110, end: 20201117
  5. KETOPROFENE MYLAN LP 100 MG [Concomitant]
     Indication: INFLAMMATION
     Route: 048
     Dates: start: 20201028, end: 20201101
  6. XANAZ 0.25 MG [Concomitant]
     Indication: DEPRESSION
     Route: 048
  7. CEFAZOLINE MYLAN [Suspect]
     Active Substance: CEFAZOLIN SODIUM
     Indication: BACTERIAL INFECTION
     Route: 042
     Dates: start: 20201110, end: 20201115
  8. NEFOPAM [Concomitant]
     Active Substance: NEFOPAM
     Indication: PAIN
     Dosage: AS NECESSARY ; AS NECESSARY
     Route: 048
     Dates: start: 20201028, end: 20201104
  9. HIBISCRUB [Suspect]
     Active Substance: CHLORHEXIDINE GLUCONATE
     Indication: SKIN LESION
     Route: 003
     Dates: start: 20201108, end: 20201117
  10. PANTOPRAZOLE MYLAN 20 MG [Concomitant]
     Indication: ABDOMINAL PAIN UPPER
     Route: 048
     Dates: start: 20201028, end: 20201101

REACTIONS (1)
  - Eosinophilia [Recovered/Resolved]

NARRATIVE: CASE EVENT DATE: 20201109
